FAERS Safety Report 10349729 (Version 1)
Quarter: 2014Q3

REPORT INFORMATION
  Report Type: Spontaneous
  Country: US (occurrence: None)
  Receive Date: 20140728
  Receipt Date: 20140728
  Transmission Date: 20150326
  Serious: No
  Sender: FDA-Public Use
  Company Number: None

PATIENT
  Age: 52 Year
  Sex: Female
  Weight: 64.86 kg

DRUGS (1)
  1. DIPHENOXYLATE/ATROPINE [Suspect]
     Active Substance: ATROPINE\DIPHENOXYLATE
     Indication: IRRITABLE BOWEL SYNDROME
     Dosage: 1 TABLET
     Route: 048

REACTIONS (2)
  - Nausea [None]
  - Decreased activity [None]

NARRATIVE: CASE EVENT DATE: 20140725
